FAERS Safety Report 10142967 (Version 1)
Quarter: 2014Q2

REPORT INFORMATION
  Report Type: Spontaneous
  Country: US (occurrence: None)
  Receive Date: 20140428
  Receipt Date: 20140428
  Transmission Date: 20141212
  Serious: Yes (Hospitalization)
  Sender: FDA-Public Use
  Company Number: US-LHC-2014030

PATIENT
  Age: 5 Year
  Sex: Male

DRUGS (1)
  1. OXYGEN (OXYGEN) (GAS FOR INHALATION) [Suspect]
     Indication: CARBON MONOXIDE POISONING
     Dosage: BAG-MASK VENTILATION WITH 100% OXYGEN EN ROUTE?

REACTIONS (1)
  - Pneumomediastinum [None]
